FAERS Safety Report 4751302-0 (Version None)
Quarter: 2005Q3

REPORT INFORMATION
  Report Type: 
  Country: None (occurrence: None)
  Receive Date: 20050822
  Receipt Date: 20050822
  Transmission Date: 20060218
  Serious: Yes (Other)
  Sender: FDA-Public Use
  Company Number: None

PATIENT
  Age: 55 Year
  Sex: Male
  Weight: 74.8435 kg

DRUGS (3)
  1. NARDIL [Suspect]
     Indication: DEPRESSION
     Dosage: 45 MG    TWICE DAILY   PO
     Route: 048
     Dates: start: 19900119, end: 20050821
  2. NARDIL [Suspect]
     Indication: SOCIAL PHOBIA
     Dosage: 45 MG    TWICE DAILY   PO
     Route: 048
     Dates: start: 19900119, end: 20050821
  3. XANAX [Concomitant]

REACTIONS (8)
  - AMNESIA [None]
  - CONSTIPATION [None]
  - COORDINATION ABNORMAL [None]
  - HEPATIC ENZYME INCREASED [None]
  - ORTHOSTATIC HYPOTENSION [None]
  - PHARMACEUTICAL PRODUCT COMPLAINT [None]
  - THERAPEUTIC RESPONSE DECREASED [None]
  - WEIGHT INCREASED [None]
